FAERS Safety Report 6962065-2 (Version None)
Quarter: 2010Q3

REPORT INFORMATION
  Report Type: 
  Country: None (occurrence: None)
  Receive Date: 20100901
  Receipt Date: 20100901
  Transmission Date: 20110219
  Serious: Yes (Other)
  Sender: FDA-Public Use
  Company Number: None

PATIENT
  Age: 63 Year
  Sex: Female
  Weight: 85 kg

DRUGS (1)
  1. ANASTRAZOLE [Suspect]
     Indication: BREAST CANCER
     Dosage: 1 MG QD ORAL
     Route: 048
     Dates: start: 20100801

REACTIONS (2)
  - PRURITUS [None]
  - URTICARIA [None]
